FAERS Safety Report 19103791 (Version 2)
Quarter: 2021Q2

REPORT INFORMATION
  Report Type: Spontaneous
  Country: BA (occurrence: BA)
  Receive Date: 20210407
  Receipt Date: 20210623
  Transmission Date: 20210717
  Serious: Yes (Other)
  Sender: FDA-Public Use
  Company Number: BA-SA-2021SA107922

PATIENT
  Age: 74 Year
  Sex: Male

DRUGS (5)
  1. JEVTANA [Suspect]
     Active Substance: CABAZITAXEL
     Indication: PROSTATE CANCER
     Dosage: UNK
     Route: 041
     Dates: start: 20190715
  2. PRONISON [Concomitant]
     Active Substance: PREDNISONE
     Dosage: PRONISON 5 MG X2 PER
     Dates: start: 20131102
  3. PRONISON [Concomitant]
     Active Substance: PREDNISONE
     Dosage: PRONISON 5 MG X2 PER
     Dates: start: 20190708
  4. DOCETAXEL. [Concomitant]
     Active Substance: DOCETAXEL
     Dosage: UNK
     Dates: start: 20131102
  5. JEVTANA [Suspect]
     Active Substance: CABAZITAXEL
     Dosage: 20MG/M2 ? 30 MG

REACTIONS (13)
  - Psychogenic erectile dysfunction [Unknown]
  - Nephrostomy [Unknown]
  - Spinal pain [Unknown]
  - Arthralgia [Unknown]
  - Pain [Unknown]
  - Ureteric dilatation [Unknown]
  - Hydronephrosis [Unknown]
  - Muscle spasms [Unknown]
  - Back pain [Unknown]
  - Leukopenia [Unknown]
  - Asthenia [Unknown]
  - Bladder hypertrophy [Unknown]
  - Decreased appetite [Unknown]

NARRATIVE: CASE EVENT DATE: 202007
